FAERS Safety Report 8457176-9 (Version None)
Quarter: 2012Q2

REPORT INFORMATION
  Report Type: 
  Country: None (occurrence: None)
  Receive Date: 20120621
  Receipt Date: 20120416
  Transmission Date: 20120825
  Serious: No
  Sender: FDA-Public Use
  Company Number: US-ALLERGAN-1204706US

PATIENT
  Age: 68 Year
  Sex: Female

DRUGS (5)
  1. PREDNISONE TAB [Concomitant]
     Indication: LOWER RESPIRATORY TRACT INFLAMMATION
     Dosage: 10 MG, QOD
     Route: 048
  2. ADVAIR DISKUS 100/50 [Concomitant]
     Indication: LOWER RESPIRATORY TRACT INFLAMMATION
     Route: 055
  3. TRIAMTERENE [Concomitant]
     Indication: HYPERTENSION
     Dosage: UNK
     Route: 048
  4. LUMIGAN [Suspect]
     Indication: INTRAOCULAR PRESSURE TEST
     Dosage: 1 UNK, QD
     Route: 047
  5. GENTILE [Concomitant]
     Indication: DRY EYE
     Dosage: UNK
     Route: 047

REACTIONS (1)
  - INTRAOCULAR PRESSURE INCREASED [None]
